FAERS Safety Report 9127645 (Version 1)
Quarter: 2013Q1

REPORT INFORMATION
  Report Type: Spontaneous
  Country: US (occurrence: US)
  Receive Date: 20130228
  Receipt Date: 20130228
  Transmission Date: 20140127
  Serious: No
  Sender: FDA-Public Use
  Company Number: US-GLAXOSMITHKLINE-A0989369A

PATIENT
  Age: 61 Year
  Sex: Male

DRUGS (2)
  1. LAMOTRIGINE [Suspect]
     Indication: CYCLOTHYMIC DISORDER
     Dosage: 50MG PER DAY
     Route: 048
     Dates: start: 20120401, end: 20120722
  2. NO CONCURRENT MEDICATION [Concomitant]

REACTIONS (1)
  - Musculoskeletal stiffness [Recovering/Resolving]
